FAERS Safety Report 5140641-X (Version None)
Quarter: 2006Q4

REPORT INFORMATION
  Report Type: 
  Country: None (occurrence: None)
  Receive Date: 20061025
  Receipt Date: 20060922
  Transmission Date: 20070319
  Serious: Yes (Hospitalization)
  Sender: FDA-Public Use
  Company Number: MEDI-0005053

PATIENT
  Age: 1 Month

DRUGS (1)
  1. SYNAGIS [Suspect]
     Indication: ANTIVIRAL PROPHYLAXIS
     Dosage: 40 MG, INTRAMUSCULAR
     Route: 030
     Dates: start: 20060116, end: 20060116

REACTIONS (7)
  - ANOREXIA [None]
  - BRONCHITIS [None]
  - GASTROENTERITIS [None]
  - GASTROSTOMY [None]
  - HERNIA [None]
  - OVARIAN DISORDER [None]
  - PYREXIA [None]
